FAERS Safety Report 6672775-2 (Version None)
Quarter: 2010Q2

REPORT INFORMATION
  Report Type: 
  Country: None (occurrence: None)
  Receive Date: 20100408
  Receipt Date: 20100402
  Transmission Date: 20101027
  Serious: Yes (Life-Threatening, Hospitalization)
  Sender: FDA-Public Use
  Company Number: CN-BAYER-201020875GPV

PATIENT
  Sex: Male

DRUGS (2)
  1. NEXAVAR [Suspect]
     Indication: THYROID CANCER
     Dosage: TOTAL DAILY DOSE: 800 MG
     Route: 048
     Dates: start: 20100201
  2. LEVOTHYROXINE SODIUM [Concomitant]
     Indication: THYROID CANCER

REACTIONS (2)
  - COMA HEPATIC [None]
  - HYPERTENSION [None]
